FAERS Safety Report 16229533 (Version 1)
Quarter: 2019Q2

REPORT INFORMATION
  Report Type: Spontaneous
  Country: US (occurrence: US)
  Receive Date: 20190319
  Receipt Date: 20190319
  Transmission Date: 20190711
  Serious: No
  Sender: FDA-Public Use
  Company Number: None

PATIENT
  Age: 46 Year
  Sex: Female

DRUGS (1)
  1. COSENTYX [Suspect]
     Active Substance: SECUKINUMAB
     Indication: PSORIATIC ARTHROPATHY
     Dates: start: 201808

REACTIONS (4)
  - Therapy cessation [None]
  - Memory impairment [None]
  - Arthralgia [None]
  - Ill-defined disorder [None]

NARRATIVE: CASE EVENT DATE: 20190319
